FAERS Safety Report 8964280 (Version 1)
Quarter: 2012Q4

REPORT INFORMATION
  Report Type: 
  Country: US (occurrence: US)
  Receive Date: 20121214
  Receipt Date: 20121214
  Transmission Date: 20130627
  Serious: No
  Sender: FDA-Public Use
  Company Number: US-GLAXOSMITHKLINE-A0958707A

PATIENT
  Sex: Female

DRUGS (1)
  1. AVODART [Suspect]
     Route: 062

REACTIONS (2)
  - Accidental exposure to product [Recovered/Resolved]
  - Exposure during pregnancy [Recovered/Resolved]
